FAERS Safety Report 25390480 (Version 1)
Quarter: 2025Q2

REPORT INFORMATION
  Report Type: Spontaneous
  Country: CA (occurrence: CA)
  Receive Date: 20250603
  Receipt Date: 20250603
  Transmission Date: 20250717
  Serious: Yes (Hospitalization, Other)
  Sender: MYLAN
  Company Number: CA-MYLANLABS-2025M1045983

PATIENT
  Age: 67 Year
  Sex: Female
  Weight: 73 kg

DRUGS (156)
  1. SERTRALINE [Suspect]
     Active Substance: SERTRALINE HYDROCHLORIDE
     Indication: Rheumatoid arthritis
  2. SERTRALINE [Suspect]
     Active Substance: SERTRALINE HYDROCHLORIDE
     Route: 065
  3. SERTRALINE [Suspect]
     Active Substance: SERTRALINE HYDROCHLORIDE
     Route: 065
  4. SERTRALINE [Suspect]
     Active Substance: SERTRALINE HYDROCHLORIDE
  5. ACTEMRA [Suspect]
     Active Substance: TOCILIZUMAB
     Indication: Rheumatoid arthritis
  6. ACTEMRA [Suspect]
     Active Substance: TOCILIZUMAB
     Route: 042
  7. ACTEMRA [Suspect]
     Active Substance: TOCILIZUMAB
     Route: 042
  8. ACTEMRA [Suspect]
     Active Substance: TOCILIZUMAB
  9. BUDESONIDE [Suspect]
     Active Substance: BUDESONIDE
     Indication: Product used for unknown indication
  10. BUDESONIDE [Suspect]
     Active Substance: BUDESONIDE
     Route: 055
  11. BUDESONIDE [Suspect]
     Active Substance: BUDESONIDE
     Route: 055
  12. BUDESONIDE [Suspect]
     Active Substance: BUDESONIDE
  13. ENBREL [Suspect]
     Active Substance: ETANERCEPT
     Indication: Rheumatoid arthritis
  14. ENBREL [Suspect]
     Active Substance: ETANERCEPT
     Route: 058
  15. ENBREL [Suspect]
     Active Substance: ETANERCEPT
     Route: 058
  16. ENBREL [Suspect]
     Active Substance: ETANERCEPT
  17. HUMIRA [Suspect]
     Active Substance: ADALIMUMAB
     Indication: Rheumatoid arthritis
  18. HUMIRA [Suspect]
     Active Substance: ADALIMUMAB
     Route: 058
  19. HUMIRA [Suspect]
     Active Substance: ADALIMUMAB
     Route: 058
  20. HUMIRA [Suspect]
     Active Substance: ADALIMUMAB
  21. HYDROXYCHLOROQUINE [Suspect]
     Active Substance: HYDROXYCHLOROQUINE
     Indication: Rheumatoid arthritis
  22. HYDROXYCHLOROQUINE [Suspect]
     Active Substance: HYDROXYCHLOROQUINE
     Route: 048
  23. HYDROXYCHLOROQUINE [Suspect]
     Active Substance: HYDROXYCHLOROQUINE
     Route: 048
  24. HYDROXYCHLOROQUINE [Suspect]
     Active Substance: HYDROXYCHLOROQUINE
  25. LEFLUNOMIDE [Suspect]
     Active Substance: LEFLUNOMIDE
     Indication: Rheumatoid arthritis
     Dosage: 10 MILLIGRAM, QD (1 EVERY 1 DAYS)
  26. LEFLUNOMIDE [Suspect]
     Active Substance: LEFLUNOMIDE
     Dosage: 10 MILLIGRAM, QD (1 EVERY 1 DAYS)
  27. LEFLUNOMIDE [Suspect]
     Active Substance: LEFLUNOMIDE
     Dosage: 10 MILLIGRAM, QD (1 EVERY 1 DAYS)
     Route: 048
  28. LEFLUNOMIDE [Suspect]
     Active Substance: LEFLUNOMIDE
     Dosage: 10 MILLIGRAM, QD (1 EVERY 1 DAYS)
     Route: 048
  29. LEFLUNOMIDE [Suspect]
     Active Substance: LEFLUNOMIDE
  30. LEFLUNOMIDE [Suspect]
     Active Substance: LEFLUNOMIDE
  31. LEFLUNOMIDE [Suspect]
     Active Substance: LEFLUNOMIDE
     Route: 065
  32. LEFLUNOMIDE [Suspect]
     Active Substance: LEFLUNOMIDE
     Route: 065
  33. LENALIDOMIDE [Suspect]
     Active Substance: LENALIDOMIDE
     Indication: Rheumatoid arthritis
  34. LENALIDOMIDE [Suspect]
     Active Substance: LENALIDOMIDE
  35. LENALIDOMIDE [Suspect]
     Active Substance: LENALIDOMIDE
     Route: 048
  36. LENALIDOMIDE [Suspect]
     Active Substance: LENALIDOMIDE
     Route: 048
  37. LENALIDOMIDE [Suspect]
     Active Substance: LENALIDOMIDE
  38. LENALIDOMIDE [Suspect]
     Active Substance: LENALIDOMIDE
  39. LENALIDOMIDE [Suspect]
     Active Substance: LENALIDOMIDE
     Route: 048
  40. LENALIDOMIDE [Suspect]
     Active Substance: LENALIDOMIDE
     Route: 048
  41. LENALIDOMIDE [Suspect]
     Active Substance: LENALIDOMIDE
  42. LENALIDOMIDE [Suspect]
     Active Substance: LENALIDOMIDE
     Route: 048
  43. LENALIDOMIDE [Suspect]
     Active Substance: LENALIDOMIDE
  44. LENALIDOMIDE [Suspect]
     Active Substance: LENALIDOMIDE
     Route: 048
  45. LENALIDOMIDE [Suspect]
     Active Substance: LENALIDOMIDE
     Indication: Rheumatoid arthritis
     Dosage: 20 MILLIGRAM, QD (1 EVERY 1 DAYS)
  46. LENALIDOMIDE [Suspect]
     Active Substance: LENALIDOMIDE
     Dosage: 20 MILLIGRAM, QD (1 EVERY 1 DAYS)
  47. LENALIDOMIDE [Suspect]
     Active Substance: LENALIDOMIDE
     Dosage: 20 MILLIGRAM, QD (1 EVERY 1 DAYS)
     Route: 065
  48. LENALIDOMIDE [Suspect]
     Active Substance: LENALIDOMIDE
     Dosage: 20 MILLIGRAM, QD (1 EVERY 1 DAYS)
     Route: 065
  49. LENALIDOMIDE [Suspect]
     Active Substance: LENALIDOMIDE
  50. LENALIDOMIDE [Suspect]
     Active Substance: LENALIDOMIDE
  51. LENALIDOMIDE [Suspect]
     Active Substance: LENALIDOMIDE
     Route: 048
  52. LENALIDOMIDE [Suspect]
     Active Substance: LENALIDOMIDE
     Route: 048
  53. MAGNESIUM OXIDE [Suspect]
     Active Substance: MAGNESIUM OXIDE
     Indication: Rheumatoid arthritis
  54. MAGNESIUM OXIDE [Suspect]
     Active Substance: MAGNESIUM OXIDE
     Route: 065
  55. MAGNESIUM OXIDE [Suspect]
     Active Substance: MAGNESIUM OXIDE
     Route: 065
  56. MAGNESIUM OXIDE [Suspect]
     Active Substance: MAGNESIUM OXIDE
  57. METHOTREXATE SODIUM [Suspect]
     Active Substance: METHOTREXATE SODIUM
     Indication: Rheumatoid arthritis
     Dosage: 25 MILLIGRAM, QW (1 EVERY 1 WEEKS)
  58. METHOTREXATE SODIUM [Suspect]
     Active Substance: METHOTREXATE SODIUM
     Dosage: 25 MILLIGRAM, QW (1 EVERY 1 WEEKS)
  59. METHOTREXATE SODIUM [Suspect]
     Active Substance: METHOTREXATE SODIUM
     Dosage: 25 MILLIGRAM, QW (1 EVERY 1 WEEKS)
     Route: 065
  60. METHOTREXATE SODIUM [Suspect]
     Active Substance: METHOTREXATE SODIUM
     Dosage: 25 MILLIGRAM, QW (1 EVERY 1 WEEKS)
     Route: 065
  61. METHOTREXATE SODIUM [Suspect]
     Active Substance: METHOTREXATE SODIUM
  62. METHOTREXATE SODIUM [Suspect]
     Active Substance: METHOTREXATE SODIUM
  63. METHOTREXATE SODIUM [Suspect]
     Active Substance: METHOTREXATE SODIUM
     Route: 065
  64. METHOTREXATE SODIUM [Suspect]
     Active Substance: METHOTREXATE SODIUM
     Route: 065
  65. METHOTREXATE SODIUM [Suspect]
     Active Substance: METHOTREXATE SODIUM
     Dosage: 25 MILLIGRAM, QD (1 EVERY 1 DAYS)
  66. METHOTREXATE SODIUM [Suspect]
     Active Substance: METHOTREXATE SODIUM
     Dosage: 25 MILLIGRAM, QD (1 EVERY 1 DAYS)
     Route: 065
  67. METHOTREXATE SODIUM [Suspect]
     Active Substance: METHOTREXATE SODIUM
     Dosage: 25 MILLIGRAM, QD (1 EVERY 1 DAYS)
  68. METHOTREXATE SODIUM [Suspect]
     Active Substance: METHOTREXATE SODIUM
     Dosage: 25 MILLIGRAM, QD (1 EVERY 1 DAYS)
     Route: 065
  69. ORENCIA [Suspect]
     Active Substance: ABATACEPT
     Indication: Rheumatoid arthritis
     Dosage: 25 MILLIGRAM, QW (1 EVERY 1 WEEKS)
  70. ORENCIA [Suspect]
     Active Substance: ABATACEPT
     Dosage: 25 MILLIGRAM, QW (1 EVERY 1 WEEKS)
     Route: 042
  71. ORENCIA [Suspect]
     Active Substance: ABATACEPT
     Dosage: 25 MILLIGRAM, QW (1 EVERY 1 WEEKS)
     Route: 042
  72. ORENCIA [Suspect]
     Active Substance: ABATACEPT
     Dosage: 25 MILLIGRAM, QW (1 EVERY 1 WEEKS)
  73. PERIOGARD [Suspect]
     Active Substance: CHLORHEXIDINE GLUCONATE
     Indication: Product used for unknown indication
  74. PERIOGARD [Suspect]
     Active Substance: CHLORHEXIDINE GLUCONATE
     Route: 002
  75. PERIOGARD [Suspect]
     Active Substance: CHLORHEXIDINE GLUCONATE
     Route: 002
  76. PERIOGARD [Suspect]
     Active Substance: CHLORHEXIDINE GLUCONATE
  77. REMICADE [Suspect]
     Active Substance: INFLIXIMAB
     Indication: Rheumatoid arthritis
  78. REMICADE [Suspect]
     Active Substance: INFLIXIMAB
     Indication: Crohn^s disease
     Route: 042
  79. REMICADE [Suspect]
     Active Substance: INFLIXIMAB
     Route: 042
  80. REMICADE [Suspect]
     Active Substance: INFLIXIMAB
  81. RITUXIMAB [Suspect]
     Active Substance: RITUXIMAB
     Indication: Rheumatoid arthritis
  82. RITUXIMAB [Suspect]
     Active Substance: RITUXIMAB
     Route: 042
  83. RITUXIMAB [Suspect]
     Active Substance: RITUXIMAB
     Route: 042
  84. RITUXIMAB [Suspect]
     Active Substance: RITUXIMAB
  85. SIMPONI [Suspect]
     Active Substance: GOLIMUMAB
     Indication: Rheumatoid arthritis
  86. SIMPONI [Suspect]
     Active Substance: GOLIMUMAB
     Route: 058
  87. SIMPONI [Suspect]
     Active Substance: GOLIMUMAB
     Route: 058
  88. SIMPONI [Suspect]
     Active Substance: GOLIMUMAB
  89. XELJANZ [Suspect]
     Active Substance: TOFACITINIB CITRATE
     Indication: Rheumatoid arthritis
     Dosage: 5 MILLIGRAM, BID (2 EVERY 1 DAYS)
  90. XELJANZ [Suspect]
     Active Substance: TOFACITINIB CITRATE
     Dosage: 5 MILLIGRAM, BID (2 EVERY 1 DAYS)
     Route: 048
  91. XELJANZ [Suspect]
     Active Substance: TOFACITINIB CITRATE
     Dosage: 5 MILLIGRAM, BID (2 EVERY 1 DAYS)
     Route: 048
  92. XELJANZ [Suspect]
     Active Substance: TOFACITINIB CITRATE
     Dosage: 5 MILLIGRAM, BID (2 EVERY 1 DAYS)
  93. ALENDRONATE SODIUM [Concomitant]
     Active Substance: ALENDRONATE SODIUM
  94. ALENDRONATE SODIUM [Concomitant]
     Active Substance: ALENDRONATE SODIUM
     Route: 065
  95. ALENDRONATE SODIUM [Concomitant]
     Active Substance: ALENDRONATE SODIUM
     Route: 065
  96. ALENDRONATE SODIUM [Concomitant]
     Active Substance: ALENDRONATE SODIUM
  97. ATENOLOL [Concomitant]
     Active Substance: ATENOLOL
  98. ATENOLOL [Concomitant]
     Active Substance: ATENOLOL
     Route: 065
  99. ATENOLOL [Concomitant]
     Active Substance: ATENOLOL
     Route: 065
  100. ATENOLOL [Concomitant]
     Active Substance: ATENOLOL
  101. AMLODIPINE [Concomitant]
     Active Substance: AMLODIPINE BESYLATE
  102. AMLODIPINE [Concomitant]
     Active Substance: AMLODIPINE BESYLATE
     Route: 065
  103. AMLODIPINE [Concomitant]
     Active Substance: AMLODIPINE BESYLATE
     Route: 065
  104. AMLODIPINE [Concomitant]
     Active Substance: AMLODIPINE BESYLATE
  105. CODEINE [Concomitant]
     Active Substance: CODEINE
  106. CODEINE [Concomitant]
     Active Substance: CODEINE
     Route: 065
  107. CODEINE [Concomitant]
     Active Substance: CODEINE
     Route: 065
  108. CODEINE [Concomitant]
     Active Substance: CODEINE
  109. CYANOCOBALAMIN [Concomitant]
     Active Substance: CYANOCOBALAMIN
  110. CYANOCOBALAMIN [Concomitant]
     Active Substance: CYANOCOBALAMIN
     Route: 065
  111. CYANOCOBALAMIN [Concomitant]
     Active Substance: CYANOCOBALAMIN
     Route: 065
  112. CYANOCOBALAMIN [Concomitant]
     Active Substance: CYANOCOBALAMIN
  113. ERGOCALCIFEROL [Concomitant]
     Active Substance: ERGOCALCIFEROL
  114. ERGOCALCIFEROL [Concomitant]
     Active Substance: ERGOCALCIFEROL
     Route: 065
  115. ERGOCALCIFEROL [Concomitant]
     Active Substance: ERGOCALCIFEROL
     Route: 065
  116. ERGOCALCIFEROL [Concomitant]
     Active Substance: ERGOCALCIFEROL
  117. GOLD [Concomitant]
     Active Substance: GOLD
  118. GOLD [Concomitant]
     Active Substance: GOLD
     Route: 065
  119. GOLD [Concomitant]
     Active Substance: GOLD
     Route: 065
  120. GOLD [Concomitant]
     Active Substance: GOLD
  121. IRON [Concomitant]
     Active Substance: IRON
  122. IRON [Concomitant]
     Active Substance: IRON
     Route: 065
  123. IRON [Concomitant]
     Active Substance: IRON
     Route: 065
  124. IRON [Concomitant]
     Active Substance: IRON
  125. LYRICA [Concomitant]
     Active Substance: PREGABALIN
  126. LYRICA [Concomitant]
     Active Substance: PREGABALIN
     Route: 065
  127. LYRICA [Concomitant]
     Active Substance: PREGABALIN
     Route: 065
  128. LYRICA [Concomitant]
     Active Substance: PREGABALIN
  129. PRAMIPEXOLE [Concomitant]
     Active Substance: PRAMIPEXOLE
  130. PRAMIPEXOLE [Concomitant]
     Active Substance: PRAMIPEXOLE
     Route: 065
  131. PRAMIPEXOLE [Concomitant]
     Active Substance: PRAMIPEXOLE
     Route: 065
  132. PRAMIPEXOLE [Concomitant]
     Active Substance: PRAMIPEXOLE
  133. PREDNISONE [Concomitant]
     Active Substance: PREDNISONE
  134. PREDNISONE [Concomitant]
     Active Substance: PREDNISONE
     Route: 065
  135. PREDNISONE [Concomitant]
     Active Substance: PREDNISONE
     Route: 065
  136. PREDNISONE [Concomitant]
     Active Substance: PREDNISONE
  137. TRAZODONE [Concomitant]
     Active Substance: TRAZODONE HYDROCHLORIDE
  138. TRAZODONE [Concomitant]
     Active Substance: TRAZODONE HYDROCHLORIDE
     Route: 065
  139. TRAZODONE [Concomitant]
     Active Substance: TRAZODONE HYDROCHLORIDE
     Route: 065
  140. TRAZODONE [Concomitant]
     Active Substance: TRAZODONE HYDROCHLORIDE
  141. RAMIPRIL [Concomitant]
     Active Substance: RAMIPRIL
  142. RAMIPRIL [Concomitant]
     Active Substance: RAMIPRIL
     Route: 065
  143. RAMIPRIL [Concomitant]
     Active Substance: RAMIPRIL
     Route: 065
  144. RAMIPRIL [Concomitant]
     Active Substance: RAMIPRIL
  145. PROPRANOLOL [Concomitant]
     Active Substance: PROPRANOLOL HYDROCHLORIDE
  146. PROPRANOLOL [Concomitant]
     Active Substance: PROPRANOLOL HYDROCHLORIDE
     Route: 065
  147. PROPRANOLOL [Concomitant]
     Active Substance: PROPRANOLOL HYDROCHLORIDE
     Route: 065
  148. PROPRANOLOL [Concomitant]
     Active Substance: PROPRANOLOL HYDROCHLORIDE
  149. TOCILIZUMAB [Concomitant]
     Active Substance: TOCILIZUMAB
  150. TOCILIZUMAB [Concomitant]
     Active Substance: TOCILIZUMAB
     Route: 065
  151. TOCILIZUMAB [Concomitant]
     Active Substance: TOCILIZUMAB
     Route: 065
  152. TOCILIZUMAB [Concomitant]
     Active Substance: TOCILIZUMAB
  153. ARAVA [Concomitant]
     Active Substance: LEFLUNOMIDE
  154. ARAVA [Concomitant]
     Active Substance: LEFLUNOMIDE
     Route: 065
  155. ARAVA [Concomitant]
     Active Substance: LEFLUNOMIDE
     Route: 065
  156. ARAVA [Concomitant]
     Active Substance: LEFLUNOMIDE

REACTIONS (21)
  - Arthritis [Not Recovered/Not Resolved]
  - Arthropathy [Not Recovered/Not Resolved]
  - C-reactive protein increased [Not Recovered/Not Resolved]
  - Condition aggravated [Not Recovered/Not Resolved]
  - Hepatic enzyme increased [Not Recovered/Not Resolved]
  - Infusion related reaction [Not Recovered/Not Resolved]
  - Joint swelling [Not Recovered/Not Resolved]
  - Loss of personal independence in daily activities [Not Recovered/Not Resolved]
  - Pneumonia [Not Recovered/Not Resolved]
  - Pulmonary fibrosis [Not Recovered/Not Resolved]
  - Red blood cell sedimentation rate increased [Not Recovered/Not Resolved]
  - Rheumatoid arthritis [Not Recovered/Not Resolved]
  - Rheumatoid factor positive [Not Recovered/Not Resolved]
  - Synovitis [Not Recovered/Not Resolved]
  - Abdominal pain [Not Recovered/Not Resolved]
  - Arthralgia [Not Recovered/Not Resolved]
  - Drug hypersensitivity [Not Recovered/Not Resolved]
  - Headache [Not Recovered/Not Resolved]
  - Hypertension [Not Recovered/Not Resolved]
  - Insomnia [Not Recovered/Not Resolved]
  - Off label use [Unknown]
